FAERS Safety Report 8182441-2 (Version None)
Quarter: 2012Q1

REPORT INFORMATION
  Report Type: 
  Country: None (occurrence: None)
  Receive Date: 20120305
  Receipt Date: 20120224
  Transmission Date: 20120608
  Serious: Yes (Hospitalization)
  Sender: FDA-Public Use
  Company Number: US-BIOGENIDEC-2011BI037270

PATIENT
  Age: 48 Year
  Sex: Male

DRUGS (2)
  1. TYSABRI [Suspect]
     Indication: MULTIPLE SCLEROSIS
     Route: 042
     Dates: start: 20090921, end: 20120130
  2. OXYCODONE HCL [Concomitant]

REACTIONS (9)
  - MULTIPLE SCLEROSIS RELAPSE [None]
  - RENAL FAILURE [None]
  - MYOCARDIAL INFARCTION [None]
  - LACERATION [None]
  - ARRHYTHMIA [None]
  - GENERAL PHYSICAL HEALTH DETERIORATION [None]
  - CLAUSTROPHOBIA [None]
  - BLOOD GLUCOSE INCREASED [None]
  - STRESS [None]
